FAERS Safety Report 6263064-9 (Version None)
Quarter: 2009Q3

REPORT INFORMATION
  Report Type: 
  Country: None (occurrence: None)
  Receive Date: 20090710
  Receipt Date: 20070618
  Transmission Date: 20100115
  Serious: Yes (Other)
  Sender: FDA-Public Use
  Company Number: US-ASTRAZENECA-2006UW23520

PATIENT
  Age: 18974 Day
  Sex: Male
  Weight: 138.3 kg

DRUGS (25)
  1. SEROQUEL [Suspect]
     Indication: DEPRESSION
     Route: 048
     Dates: start: 19980101, end: 20030101
  2. SEROQUEL [Suspect]
     Indication: BIPOLAR DISORDER
     Route: 048
     Dates: start: 19980101, end: 20030101
  3. SEROQUEL [Suspect]
     Dosage: 25-600 MG
     Route: 048
     Dates: start: 19990928
  4. SEROQUEL [Suspect]
     Dosage: 25-600 MG
     Route: 048
     Dates: start: 19990928
  5. HALDOL [Concomitant]
  6. RISPERDAL [Concomitant]
  7. THORAZINE [Concomitant]
  8. ZYPREXA [Concomitant]
     Indication: PSYCHOTIC DISORDER
     Dosage: 20-40 MG
  9. CELLCEPT [Concomitant]
  10. TEGRETOL [Concomitant]
     Indication: MANIA
     Dosage: 200 MG TWO TIMES A DAY, 200 MG THREE TIMES A DAY, 200 MG DAILY
     Route: 048
  11. GLUCOPHAGE [Concomitant]
     Indication: DIABETES MELLITUS
  12. LIPITOR [Concomitant]
     Dosage: 10 MG DAILY, 20 MG DAILY
  13. DIOVAN [Concomitant]
  14. HYDROCHLOROTHIAZIDE [Concomitant]
  15. LOTREL [Concomitant]
     Indication: HYPERTENSION
     Dosage: 5-10 MG
  16. GLUCOTROL XL [Concomitant]
     Indication: DIABETES MELLITUS
     Dosage: 10 TWO TIMES A DAY, 5 MG TWO TIMES A DAY
  17. DEPAKOTE [Concomitant]
     Dosage: 50 MG TO 1500 MG
  18. WELLBUTRIN SR [Concomitant]
  19. ALTACE [Concomitant]
     Dosage: 10 MG DAILY, 10 MG TWO TIMES A DAY
  20. COMBIVENT AR [Concomitant]
     Dosage: 2 PUFFS TWICE A DAY
  21. CYTOXAN [Concomitant]
     Dosage: 50 MG DAILY, 75 MG DAILY
     Route: 048
  22. ZITHROMAX [Concomitant]
  23. PREDNISONE [Concomitant]
     Dosage: 40 MG DAILY, 80 MG DAILY
  24. ABILIFY [Concomitant]
     Dosage: 30 MG DAILY, 200 MG DAILY
  25. CATAPRES [Concomitant]
     Dosage: 3 EVERY WEEK

REACTIONS (4)
  - DIABETES MELLITUS [None]
  - DIABETIC GASTROPARESIS [None]
  - HYPERGLYCAEMIA [None]
  - RENAL FAILURE CHRONIC [None]
